FAERS Safety Report 9929056 (Version 1)
Quarter: 2014Q1

REPORT INFORMATION
  Report Type: Spontaneous
  Country: CA (occurrence: None)
  Receive Date: 20140224
  Receipt Date: 20140224
  Transmission Date: 20141002
  Serious: Yes (Hospitalization)
  Sender: FDA-Public Use
  Company Number: FK201400605

PATIENT
  Age: 3 Month
  Sex: Male

DRUGS (7)
  1. CARBOPLATIN (MANUFACTURER UNKNOWN) (CARBOPLATIN) (CARBOPLATIN) [Suspect]
     Indication: RHABDOID TUMOUR
     Dosage: 3 COURSES
  2. THIOTEPA (THIOTEPA) [Suspect]
     Indication: RHABDOID TUMOUR
     Dosage: 3 COURSES
  3. METHOTREXATE (METHOTREXATE) [Concomitant]
  4. VINCRISTINE (VINCRISTINE) [Concomitant]
  5. ETOPOSIDE [Concomitant]
  6. CYCLOPHOSPHAMIDE [Concomitant]
  7. CISPLATIN [Concomitant]

REACTIONS (5)
  - Pulmonary vascular disorder [None]
  - Tachypnoea [None]
  - Dilatation ventricular [None]
  - Disease progression [None]
  - Oxygen saturation decreased [None]
